FAERS Safety Report 7423245-5 (Version None)
Quarter: 2011Q2

REPORT INFORMATION
  Report Type: 
  Country: None (occurrence: None)
  Receive Date: 20110407
  Receipt Date: 20110325
  Transmission Date: 20111010
  Serious: Yes (Congenital Anomaly, Other)
  Sender: FDA-Public Use
  Company Number: AUR-APL-2011-01112

PATIENT

DRUGS (3)
  1. CANNABIS TRANSPLACENTAL [Concomitant]
  2. VENLAFAXINE TRANSPLACENTAL [Concomitant]
  3. CITALOPRAM [Suspect]
     Indication: DEPRESSION
     Dosage: TRANSPLACENTAL

REACTIONS (2)
  - VENTRICULAR SEPTAL DEFECT [None]
  - MATERNAL DRUGS AFFECTING FOETUS [None]
